FAERS Safety Report 7001010-0 (Version None)
Quarter: 2010Q3

REPORT INFORMATION
  Report Type: 
  Country: None (occurrence: None)
  Receive Date: 20100920
  Receipt Date: 20100723
  Transmission Date: 20110219
  Serious: Yes (Other)
  Sender: FDA-Public Use
  Company Number: US-ASTRAZENECA-2009UW14929

PATIENT
  Age: 566 Month
  Sex: Male
  Weight: 149.7 kg

DRUGS (8)
  1. SEROQUEL [Suspect]
     Indication: SCHIZOPHRENIA
     Dosage: 200-800 MG
     Route: 048
     Dates: start: 20040101
  2. SEROQUEL [Suspect]
     Indication: MENTAL DISORDER
     Dosage: 200-800 MG
     Route: 048
     Dates: start: 20040101
  3. ABILIFY [Concomitant]
  4. HYDROCHLOROTHIAZIDE [Concomitant]
     Indication: BLOOD PRESSURE
     Route: 048
     Dates: start: 20090618
  5. PAROXETINE [Concomitant]
     Indication: AFFECTIVE DISORDER
     Dosage: ONE AND ONE HALF TABLET AT BEDTIME
     Route: 048
     Dates: start: 20090201
  6. BUPROPION [Concomitant]
     Route: 048
     Dates: start: 20090601
  7. PROPRANOLOL [Concomitant]
     Route: 048
     Dates: start: 20090501
  8. LISINOPRIL [Concomitant]
     Indication: BLOOD PRESSURE
     Dosage: ONE HALF TABLET EVERYDAY
     Route: 048
     Dates: start: 20090501

REACTIONS (6)
  - ERECTILE DYSFUNCTION [None]
  - EXTRAPYRAMIDAL DISORDER [None]
  - OBESITY [None]
  - TARDIVE DYSKINESIA [None]
  - TYPE 1 DIABETES MELLITUS [None]
  - TYPE 2 DIABETES MELLITUS [None]
